FAERS Safety Report 6220818-2 (Version None)
Quarter: 2009Q2

REPORT INFORMATION
  Report Type: 
  Country: None (occurrence: None)
  Receive Date: 20090610
  Receipt Date: 20080806
  Transmission Date: 20091009
  Serious: No
  Sender: FDA-Public Use
  Company Number: US-TYCO HEALTHCARE/MALLINCKRODT-T200801261

PATIENT

DRUGS (8)
  1. OCTREOSCAN [Suspect]
     Indication: SOMATOSTATIN RECEPTOR SCAN
     Dosage: 6.5 MCI, SINGLE
     Route: 042
     Dates: start: 20080806, end: 20080806
  2. HYDROCHLOROTHIAZIDE [Concomitant]
     Route: 048
  3. LEVOXYL [Concomitant]
     Route: 048
  4. DIOVAN                             /01319601/ [Concomitant]
     Route: 048
  5. PREMARIN [Concomitant]
     Route: 048
  6. OSCAL                              /00108001/ [Concomitant]
     Route: 048
  7. CALTRATE                           /00108001/ [Concomitant]
     Route: 048
  8. METOPROLOL SUCCINATE [Concomitant]
     Route: 048

REACTIONS (2)
  - BLOOD PRESSURE INCREASED [None]
  - DIZZINESS [None]
